FAERS Safety Report 8160652-X (Version None)
Quarter: 2012Q1

REPORT INFORMATION
  Report Type: 
  Country: None (occurrence: None)
  Receive Date: 20120223
  Receipt Date: 20120214
  Transmission Date: 20120608
  Serious: Yes (Other)
  Sender: FDA-Public Use
  Company Number: US-RB-037361-12

PATIENT
  Age: 57 Year
  Sex: Male

DRUGS (1)
  1. SUBOXONE [Suspect]
     Indication: DRUG DEPENDENCE
     Dosage: OTHER DOSING DETAILS UNKNOWN
     Route: 060
     Dates: start: 20080101

REACTIONS (2)
  - ABDOMINAL PAIN [None]
  - INTRADUCTAL PAPILLARY MUCINOUS NEOPLASM [None]
